FAERS Safety Report 18396583 (Version 2)
Quarter: 2020Q4

REPORT INFORMATION
  Report Type: Report from Study
  Country: None (occurrence: US)
  Receive Date: 20201019
  Receipt Date: 20201021
  Transmission Date: 20210114
  Serious: Yes (Other)
  Sender: FDA-Public Use
  Company Number: US-ABBVIE-20K-163-3607838-00

PATIENT
  Sex: Female

DRUGS (1)
  1. HUMIRA [Suspect]
     Active Substance: ADALIMUMAB
     Indication: CROHN^S DISEASE
     Dosage: CITRATE FREE
     Route: 058
     Dates: end: 20200315

REACTIONS (7)
  - Liver disorder [Unknown]
  - Crohn^s disease [Unknown]
  - Diarrhoea [Unknown]
  - Stoma site ulcer [Unknown]
  - Ostomy bag placement [Unknown]
  - Fistula [Unknown]
  - Fistula discharge [Unknown]
